FAERS Safety Report 13270263 (Version 1)
Quarter: 2017Q1

REPORT INFORMATION
  Report Type: Spontaneous
  Country: JP (occurrence: JP)
  Receive Date: 20170224
  Receipt Date: 20170224
  Transmission Date: 20170428
  Serious: Yes (Other)
  Sender: FDA-Public Use
  Company Number: JP-GLAXOSMITHKLINE-JP2017JPN025132

PATIENT
  Age: 38 Year
  Sex: Female

DRUGS (4)
  1. RELENZA [Suspect]
     Active Substance: ZANAMIVIR
     Indication: INFLUENZA
     Dosage: 10 MG, BID
     Route: 055
     Dates: start: 20170218, end: 20170222
  2. CALONAL TABLET [Concomitant]
     Dosage: 300 MG, PRN
     Dates: start: 20170218, end: 20170222
  3. MUCODYNE TABLETS [Concomitant]
     Dosage: 500 MG, TID
     Dates: start: 20170218, end: 20170222
  4. ISODINE [Concomitant]
     Active Substance: POVIDONE-IODINE
     Dosage: UNK
     Dates: start: 20170218, end: 20170222

REACTIONS (2)
  - Hypothermia [Not Recovered/Not Resolved]
  - Malaise [Not Recovered/Not Resolved]

NARRATIVE: CASE EVENT DATE: 20170222
